FAERS Safety Report 9870835 (Version 1)
Quarter: 2014Q1

REPORT INFORMATION
  Report Type: Spontaneous
  Country: FI (occurrence: FI)
  Receive Date: 20140205
  Receipt Date: 20140205
  Transmission Date: 20141002
  Serious: Yes (Hospitalization)
  Sender: FDA-Public Use
  Company Number: PHHY2014FI012429

PATIENT
  Age: 80 Year
  Sex: Male

DRUGS (2)
  1. EXELON PATCH [Suspect]
     Indication: DEMENTIA ALZHEIMER^S TYPE
     Dosage: 4.6 MG/24 HOURS
     Route: 062
  2. EXELON PATCH [Suspect]
     Dosage: 4.6 MG/24 HOURS
     Route: 062

REACTIONS (4)
  - Nausea [Unknown]
  - Drug administration error [Unknown]
  - Overdose [Unknown]
  - Heart rate decreased [Unknown]
